FAERS Safety Report 14418650 (Version 1)
Quarter: 2018Q1

REPORT INFORMATION
  Report Type: Spontaneous
  Country: US (occurrence: US)
  Receive Date: 20180122
  Receipt Date: 20180122
  Transmission Date: 20180509
  Serious: No
  Sender: FDA-Public Use
  Company Number: US-TEVA-773646USA

PATIENT
  Age: 70 Year
  Sex: Female

DRUGS (2)
  1. TOPIRAMATE. [Suspect]
     Active Substance: TOPIRAMATE
     Route: 065
  2. TRAZODONE [Suspect]
     Active Substance: TRAZODONE HYDROCHLORIDE
     Indication: SLEEP DISORDER
     Route: 065

REACTIONS (6)
  - Visual impairment [Unknown]
  - Cluster headache [Unknown]
  - Cough [Unknown]
  - Malaise [Unknown]
  - Cataract [Unknown]
  - Pain [Unknown]

NARRATIVE: CASE EVENT DATE: 2016
